FAERS Safety Report 6657074-7 (Version None)
Quarter: 2010Q1

REPORT INFORMATION
  Report Type: 
  Country: None (occurrence: None)
  Receive Date: 20100330
  Receipt Date: 20100324
  Transmission Date: 20100710
  Serious: Yes (Other)
  Sender: FDA-Public Use
  Company Number: US-PERRIGO-10US007788

PATIENT
  Sex: Female

DRUGS (3)
  1. LICE SHMPO LIQ 866 [Suspect]
     Indication: LICE INFESTATION
     Dosage: 1 DF, PRN
     Route: 061
     Dates: start: 20070309, end: 20100216
  2. LICE SHMPO LIQ 866 [Suspect]
     Dosage: 1 DF, PRN
     Route: 061
     Dates: start: 20070309, end: 20100216
  3. RID MOUSSE [Suspect]
     Indication: LICE INFESTATION
     Dosage: UNK
     Route: 061
     Dates: start: 20070301, end: 20100216

REACTIONS (10)
  - DECREASED APPETITE [None]
  - DRUG INEFFECTIVE [None]
  - FATIGUE [None]
  - GINGIVAL DISORDER [None]
  - OVERDOSE [None]
  - PAIN IN EXTREMITY [None]
  - PYREXIA [None]
  - SYSTEMIC LUPUS ERYTHEMATOSUS [None]
  - TOOTH DEVELOPMENT DISORDER [None]
  - WEIGHT DECREASED [None]
